FAERS Safety Report 23684837 (Version 1)
Quarter: 2024Q1

REPORT INFORMATION
  Report Type: Spontaneous
  Country: US (occurrence: US)
  Receive Date: 20240328
  Receipt Date: 20240328
  Transmission Date: 20240410
  Serious: No
  Sender: FDA-Public Use
  Company Number: US-SANDOZ-SDZ2024US032824

PATIENT
  Sex: Female

DRUGS (1)
  1. RECLAST [Suspect]
     Active Substance: ZOLEDRONIC ACID
     Indication: Product used for unknown indication
     Dosage: UNK, QD
     Route: 065
     Dates: start: 20240322, end: 20240322

REACTIONS (7)
  - Illness [Unknown]
  - Muscle tightness [Unknown]
  - Gastrointestinal disorder [Unknown]
  - Burning sensation [Unknown]
  - Burning sensation [Unknown]
  - Headache [Not Recovered/Not Resolved]
  - Pyrexia [Unknown]
